FAERS Safety Report 9380877 (Version 1)
Quarter: 2013Q3

REPORT INFORMATION
  Report Type: Spontaneous
  Country: US (occurrence: US)
  Receive Date: 20130703
  Receipt Date: 20130703
  Transmission Date: 20140515
  Serious: No
  Sender: FDA-Public Use
  Company Number: US-009507513-1307USA000681

PATIENT
  Sex: Male

DRUGS (2)
  1. AZASITE [Suspect]
     Dosage: 1 GTT, BID (ONE DROP IN EACH EYE TWICE DAILY FOR TWO DAYS)
     Route: 047
     Dates: start: 20130621, end: 20130622
  2. AZASITE [Suspect]
     Dosage: 1 GTT, QD (ONE DROP IN EACH EYE ONCE DAILY FOR TWO DAYS)
     Route: 047
     Dates: start: 20130623

REACTIONS (3)
  - Drug prescribing error [Unknown]
  - Physical product label issue [Unknown]
  - No adverse event [Unknown]
